FAERS Safety Report 18120842 (Version 3)
Quarter: 2021Q3

REPORT INFORMATION
  Report Type: Spontaneous
  Country: US (occurrence: US)
  Receive Date: 20200806
  Receipt Date: 20210723
  Transmission Date: 20211014
  Serious: Yes (Other)
  Sender: FDA-Public Use
  Company Number: US-ASTRAZENECA-2020SE97543

PATIENT
  Age: 17679 Day
  Sex: Female
  Weight: 64 kg

DRUGS (64)
  1. NEXIUM [Suspect]
     Active Substance: ESOMEPRAZOLE MAGNESIUM
     Indication: GASTROOESOPHAGEAL REFLUX DISEASE
     Route: 048
     Dates: start: 200001, end: 201812
  2. TUMS [Concomitant]
     Active Substance: CALCIUM CARBONATE
  3. ROLAIDS [Concomitant]
     Active Substance: CALCIUM CARBONATE\MAGNESIUM HYDROXIDE
  4. SAPHRIS [Concomitant]
     Active Substance: ASENAPINE MALEATE
  5. CETIRIZINE [Concomitant]
     Active Substance: CETIRIZINE HYDROCHLORIDE
  6. ATORVASTATIN [Concomitant]
     Active Substance: ATORVASTATIN
  7. LOMOTIL [Concomitant]
     Active Substance: ATROPINE SULFATE\DIPHENOXYLATE HYDROCHLORIDE
  8. ENALAPRIL [Concomitant]
     Active Substance: ENALAPRIL
  9. PROTONIX [Suspect]
     Active Substance: PANTOPRAZOLE SODIUM
     Indication: GASTROOESOPHAGEAL REFLUX DISEASE
     Route: 065
     Dates: start: 200001, end: 201812
  10. OXYCODONE [Concomitant]
     Active Substance: OXYCODONE
  11. ALPRAZOLAM. [Concomitant]
     Active Substance: ALPRAZOLAM
  12. CYCLOBENZAPRINE. [Concomitant]
     Active Substance: CYCLOBENZAPRINE
  13. QUETIAPINE. [Concomitant]
     Active Substance: QUETIAPINE
  14. METHYLPREDNISOLONE. [Concomitant]
     Active Substance: METHYLPREDNISOLONE
  15. FENOFIBRATE. [Concomitant]
     Active Substance: FENOFIBRATE
  16. LAMICTAL [Concomitant]
     Active Substance: LAMOTRIGINE
  17. NAPROXEN. [Concomitant]
     Active Substance: NAPROXEN
     Indication: ANALGESIC THERAPY
     Dates: start: 20131030
  18. CARISOPRODOL. [Concomitant]
     Active Substance: CARISOPRODOL
  19. ALENDRONATE [Concomitant]
     Active Substance: ALENDRONATE SODIUM
  20. ENALAPRIL [Concomitant]
     Active Substance: ENALAPRIL
  21. VITAMIN D [Concomitant]
     Active Substance: VITAMIN D NOS
  22. LAMOTRIGINE. [Concomitant]
     Active Substance: LAMOTRIGINE
  23. SALINE [Concomitant]
     Active Substance: SODIUM CHLORIDE
  24. TAZOBACTAM [Concomitant]
     Active Substance: TAZOBACTAM
  25. FIORICET [Concomitant]
     Active Substance: ACETAMINOPHEN\BUTALBITAL\CAFFEINE
  26. CODEINE SULFATE. [Concomitant]
     Active Substance: CODEINE SULFATE
  27. NEXIUM [Suspect]
     Active Substance: ESOMEPRAZOLE MAGNESIUM
     Indication: GASTROOESOPHAGEAL REFLUX DISEASE
     Route: 048
     Dates: start: 2001, end: 2016
  28. PREVACID [Suspect]
     Active Substance: LANSOPRAZOLE
     Indication: GASTROOESOPHAGEAL REFLUX DISEASE
     Route: 065
     Dates: start: 200001, end: 201812
  29. PROZAC [Concomitant]
     Active Substance: FLUOXETINE HYDROCHLORIDE
     Indication: ANTIDEPRESSANT THERAPY
     Dates: start: 20170127
  30. FLUOXETINE [Concomitant]
     Active Substance: FLUOXETINE HYDROCHLORIDE
     Indication: ANTIDEPRESSANT THERAPY
     Dates: start: 20170127
  31. GABAPENTIN. [Concomitant]
     Active Substance: GABAPENTIN
  32. FOSAMAX [Concomitant]
     Active Substance: ALENDRONATE SODIUM
  33. LOVENOX [Concomitant]
     Active Substance: ENOXAPARIN SODIUM
  34. ZOFRAN [Concomitant]
     Active Substance: ONDANSETRON HYDROCHLORIDE
  35. PANTOPRAZOLE [Suspect]
     Active Substance: PANTOPRAZOLE
     Indication: GASTROOESOPHAGEAL REFLUX DISEASE
     Route: 065
     Dates: start: 200001, end: 201812
  36. PAZEADIN [Concomitant]
  37. PANTOPRAZOLE [Suspect]
     Active Substance: PANTOPRAZOLE
     Indication: GASTROOESOPHAGEAL REFLUX DISEASE
     Route: 065
  38. ENALAPRIL [Concomitant]
     Active Substance: ENALAPRIL
     Indication: HYPERTENSION
     Dates: start: 20170127
  39. CRESTOR [Concomitant]
     Active Substance: ROSUVASTATIN CALCIUM
     Indication: BLOOD CHOLESTEROL
     Dates: start: 20131029
  40. IBUPROFEN. [Concomitant]
     Active Substance: IBUPROFEN
     Dates: start: 20131029
  41. FLUVOXAMINE [Concomitant]
     Active Substance: FLUVOXAMINE
  42. TOPIRAMATE. [Concomitant]
     Active Substance: TOPIRAMATE
  43. NEURONTIN [Concomitant]
     Active Substance: GABAPENTIN
  44. LUVOX [Concomitant]
     Active Substance: FLUVOXAMINE MALEATE
  45. PRILOSEC [Suspect]
     Active Substance: OMEPRAZOLE MAGNESIUM
     Indication: GASTROOESOPHAGEAL REFLUX DISEASE
     Route: 048
     Dates: start: 200001, end: 201812
  46. PRILOSEC [Suspect]
     Active Substance: OMEPRAZOLE MAGNESIUM
     Indication: GASTROOESOPHAGEAL REFLUX DISEASE
     Route: 048
     Dates: start: 2000, end: 2018
  47. PREVACID [Suspect]
     Active Substance: LANSOPRAZOLE
     Indication: GASTROOESOPHAGEAL REFLUX DISEASE
     Route: 065
     Dates: start: 2000, end: 2018
  48. RANITIDINE. [Concomitant]
     Active Substance: RANITIDINE
     Dates: start: 20170724
  49. LAMOTRIGINE. [Concomitant]
     Active Substance: LAMOTRIGINE
  50. NASONEX [Concomitant]
     Active Substance: MOMETASONE FUROATE
  51. NORTRIPTYLINE [Concomitant]
     Active Substance: NORTRIPTYLINE
  52. ONDANSETRON [Concomitant]
     Active Substance: ONDANSETRON
  53. ROSUVASTATIN. [Concomitant]
     Active Substance: ROSUVASTATIN
  54. PROTONIX [Suspect]
     Active Substance: PANTOPRAZOLE SODIUM
     Indication: GASTROOESOPHAGEAL REFLUX DISEASE
     Route: 065
  55. DICYCLOMINE [Concomitant]
     Active Substance: DICYCLOMINE HYDROCHLORIDE
  56. SUMATRIPTAN. [Concomitant]
     Active Substance: SUMATRIPTAN
  57. ADVAIR HFA [Concomitant]
     Active Substance: FLUTICASONE PROPIONATE\SALMETEROL XINAFOATE
  58. XANAX [Concomitant]
     Active Substance: ALPRAZOLAM
  59. PIPERACILLIN. [Concomitant]
     Active Substance: PIPERACILLIN SODIUM
  60. LEVOPHED [Concomitant]
     Active Substance: NOREPINEPHRINE BITARTRATE
  61. BUTALBITAL [Concomitant]
     Active Substance: BUTALBITAL
  62. SEROQUEL [Concomitant]
     Active Substance: QUETIAPINE FUMARATE
  63. BENTYL [Concomitant]
     Active Substance: DICYCLOMINE HYDROCHLORIDE
  64. METHADONE [Concomitant]
     Active Substance: METHADONE HYDROCHLORIDE

REACTIONS (7)
  - Chronic kidney disease-mineral and bone disorder [Unknown]
  - Nephrogenic anaemia [Unknown]
  - Renal failure [Unknown]
  - Gastrooesophageal reflux disease [Not Recovered/Not Resolved]
  - Acute kidney injury [Not Recovered/Not Resolved]
  - Chronic kidney disease [Not Recovered/Not Resolved]
  - Renal tubular necrosis [Unknown]

NARRATIVE: CASE EVENT DATE: 20121018
